FAERS Safety Report 7584213-6 (Version None)
Quarter: 2011Q2

REPORT INFORMATION
  Report Type: 
  Country: None (occurrence: None)
  Receive Date: 20110623
  Receipt Date: 20110616
  Transmission Date: 20111010
  Serious: Yes (Life-Threatening, Hospitalization, Disabling)
  Sender: FDA-Public Use
  Company Number: SP02359

PATIENT
  Age: 54 Year
  Sex: Female
  Weight: 56.6996 kg

DRUGS (9)
  1. PIROXICAM [Concomitant]
  2. FISH OIL [Concomitant]
  3. OSMOPREP [Suspect]
     Indication: COLONOSCOPY
     Dosage: (32 TABLETS), ORAL
     Route: 048
     Dates: start: 20090406, end: 20090407
  4. LEXAPRO [Concomitant]
  5. CALCIUM CARBONATE [Concomitant]
  6. MAGNESIUM [Concomitant]
  7. LYRICA [Concomitant]
  8. LAMISIL [Concomitant]
  9. VITAMIN K TAB [Concomitant]

REACTIONS (16)
  - ACUTE PHOSPHATE NEPHROPATHY [None]
  - URINARY TRACT INFECTION [None]
  - TETANY [None]
  - KIDNEY FIBROSIS [None]
  - RENAL TUBULAR ATROPHY [None]
  - FLUID OVERLOAD [None]
  - DRUG ABUSE [None]
  - TUBULOINTERSTITIAL NEPHRITIS [None]
  - HYPOAESTHESIA [None]
  - RHABDOMYOLYSIS [None]
  - HAEMODIALYSIS [None]
  - MUSCLE SPASMS [None]
  - HYPOCALCAEMIA [None]
  - RENAL TUBULAR NECROSIS [None]
  - NEPHROPATHY [None]
  - HYPERPHOSPHATAEMIA [None]
